FAERS Safety Report 11241434 (Version 1)
Quarter: 2015Q3

REPORT INFORMATION
  Report Type: Spontaneous
  Country: FR (occurrence: FR)
  Receive Date: 20150706
  Receipt Date: 20150706
  Transmission Date: 20151125
  Serious: Yes (Hospitalization, Other)
  Sender: FDA-Public Use
  Company Number: FR-BRISTOL-MYERS SQUIBB COMPANY-BMS-2015-042875

PATIENT
  Age: 90 Year
  Sex: Female
  Weight: 61 kg

DRUGS (1)
  1. ELIQUIS [Suspect]
     Active Substance: APIXABAN
     Indication: CEREBROVASCULAR ACCIDENT PROPHYLAXIS
     Dosage: 2.5 MG, BID
     Route: 048
     Dates: start: 201503, end: 20150612

REACTIONS (6)
  - Cardiac failure [Unknown]
  - Rhabdomyolysis [Unknown]
  - Drug level increased [Unknown]
  - Fall [Unknown]
  - Acute kidney injury [Unknown]
  - Traumatic haematoma [Not Recovered/Not Resolved]

NARRATIVE: CASE EVENT DATE: 201506
